FAERS Safety Report 16703850 (Version 1)
Quarter: 2019Q3

REPORT INFORMATION
  Report Type: Spontaneous
  Country: TW (occurrence: TW)
  Receive Date: 20190814
  Receipt Date: 20190814
  Transmission Date: 20191004
  Serious: Yes (Other)
  Sender: FDA-Public Use
  Company Number: TW-TOLMAR, INC.-TOLG20192338

PATIENT
  Age: 64 Year
  Sex: Male

DRUGS (1)
  1. METRONIDAZOLE. [Suspect]
     Active Substance: METRONIDAZOLE
     Indication: ANAL ABSCESS
     Dosage: 1 G
     Route: 048

REACTIONS (8)
  - Gait disturbance [Recovered/Resolved]
  - Romberg test positive [Recovered/Resolved]
  - Toxic encephalopathy [Recovered/Resolved]
  - Tandem gait test abnormal [Recovered/Resolved]
  - Dizziness [Recovered/Resolved]
  - Vomiting [Recovered/Resolved]
  - Nausea [Recovered/Resolved]
  - Dysarthria [Recovered/Resolved]
